FAERS Safety Report 4489761-3 (Version None)
Quarter: 2004Q4

REPORT INFORMATION
  Report Type: 
  Country: None (occurrence: None)
  Receive Date: 20041101
  Receipt Date: 20030605
  Transmission Date: 20050328
  Serious: Yes (Hospitalization, Disabling)
  Sender: FDA-Public Use
  Company Number: US-MERCK-0306USA00891

PATIENT
  Age: 54 Year
  Sex: Male

DRUGS (10)
  1. VIOXX [Suspect]
     Indication: ARTHRALGIA
     Route: 048
     Dates: start: 19991229
  2. VIOXX [Suspect]
     Route: 048
     Dates: start: 20020627
  3. VIOXX [Suspect]
     Indication: ARTHRITIS
     Route: 048
     Dates: start: 19991229
  4. VIOXX [Suspect]
     Route: 048
     Dates: start: 20020627
  5. PAXIL [Concomitant]
     Route: 048
     Dates: start: 19991229
  6. NORVASC [Concomitant]
     Route: 048
     Dates: start: 19991229
  7. LABETALOL HYDROCHLORIDE [Concomitant]
     Route: 065
     Dates: start: 19991229
  8. HYZAAR [Concomitant]
     Route: 065
     Dates: start: 19991229
  9. HUMULIN 70/30 [Concomitant]
     Route: 058
     Dates: start: 19991229, end: 20000827
  10. HUMULIN 70/30 [Concomitant]
     Route: 058
     Dates: start: 19991229, end: 20000827

REACTIONS (15)
  - ADVERSE EVENT [None]
  - AORTIC DISSECTION [None]
  - CHEST PAIN [None]
  - DRUG ABUSER [None]
  - HYPERTENSION [None]
  - HYPOAESTHESIA [None]
  - INJURY [None]
  - JOINT STIFFNESS [None]
  - LOWER RESPIRATORY TRACT INFECTION [None]
  - OBESITY [None]
  - PAIN [None]
  - PAIN IN EXTREMITY [None]
  - PARAESTHESIA [None]
  - PENILE PAIN [None]
  - RENAL CYST [None]
